FAERS Safety Report 25607213 (Version 1)
Quarter: 2025Q3

REPORT INFORMATION
  Report Type: Spontaneous
  Country: CA (occurrence: CA)
  Receive Date: 20250725
  Receipt Date: 20250725
  Transmission Date: 20251020
  Serious: Yes (Other)
  Sender: MYLAN
  Company Number: CA-MYLANLABS-2025M1062191

PATIENT
  Age: 51 Year
  Sex: Female
  Weight: 54 kg

DRUGS (6)
  1. LYRICA [Suspect]
     Active Substance: PREGABALIN
     Indication: Product used for unknown indication
  2. BACLOFEN [Suspect]
     Active Substance: BACLOFEN
     Indication: Product used for unknown indication
  3. OCRELIZUMAB [Suspect]
     Active Substance: OCRELIZUMAB
     Indication: Relapsing-remitting multiple sclerosis
     Dosage: 300 MILLIGRAM, Q2W (1 EVERY 14 DAYS)
  4. PREDNISONE [Suspect]
     Active Substance: PREDNISONE
     Indication: Tinnitus
  5. COPAXONE [Concomitant]
     Active Substance: GLATIRAMER ACETATE
  6. TIZANIDINE [Concomitant]
     Active Substance: TIZANIDINE

REACTIONS (23)
  - Arthritis [Not Recovered/Not Resolved]
  - Deafness [Not Recovered/Not Resolved]
  - Formication [Not Recovered/Not Resolved]
  - Hemiparesis [Not Recovered/Not Resolved]
  - Intervertebral disc degeneration [Not Recovered/Not Resolved]
  - Micturition urgency [Not Recovered/Not Resolved]
  - Migraine [Not Recovered/Not Resolved]
  - Muscular weakness [Not Recovered/Not Resolved]
  - Parkinson^s disease [Not Recovered/Not Resolved]
  - Peroneal nerve palsy [Not Recovered/Not Resolved]
  - Spinal osteoarthritis [Not Recovered/Not Resolved]
  - Tinnitus [Not Recovered/Not Resolved]
  - Tremor [Not Recovered/Not Resolved]
  - Balance disorder [Not Recovered/Not Resolved]
  - Drug hypersensitivity [Not Recovered/Not Resolved]
  - Dysphagia [Not Recovered/Not Resolved]
  - Fall [Not Recovered/Not Resolved]
  - Feeling abnormal [Not Recovered/Not Resolved]
  - Hyperaesthesia [Not Recovered/Not Resolved]
  - Neck pain [Not Recovered/Not Resolved]
  - Neuralgia [Not Recovered/Not Resolved]
  - Pain [Not Recovered/Not Resolved]
  - Therapeutic response shortened [Not Recovered/Not Resolved]
